FAERS Safety Report 19061797 (Version 1)
Quarter: 2021Q1

REPORT INFORMATION
  Report Type: Report from Study
  Country: None (occurrence: US)
  Receive Date: 20210325
  Receipt Date: 20210325
  Transmission Date: 20210420
  Serious: Yes (Hospitalization, Other)
  Sender: FDA-Public Use
  Company Number: US-ABBVIE-21K-163-3778653-00

PATIENT
  Age: 63 Year
  Sex: Female

DRUGS (2)
  1. HUMIRA [Suspect]
     Active Substance: ADALIMUMAB
     Indication: CROHN^S DISEASE
  2. HUMIRA [Suspect]
     Active Substance: ADALIMUMAB
     Indication: CROHN^S DISEASE
     Dosage: CITRATE FREE
     Route: 058
     Dates: start: 2003

REACTIONS (22)
  - Large intestinal stenosis [Unknown]
  - Gait disturbance [Recovered/Resolved]
  - Mobility decreased [Recovered/Resolved]
  - Abdominal discomfort [Unknown]
  - Unevaluable event [Unknown]
  - Osteoarthritis [Recovered/Resolved]
  - Feeling abnormal [Unknown]
  - Feeding disorder [Unknown]
  - Blood glucose increased [Recovered/Resolved]
  - Crohn^s disease [Unknown]
  - Pain [Unknown]
  - Joint warmth [Recovered/Resolved]
  - Joint swelling [Recovered/Resolved]
  - Abdominal rigidity [Recovered/Resolved]
  - Discomfort [Unknown]
  - Colon cancer [Unknown]
  - Feeling hot [Recovered/Resolved]
  - Arthralgia [Recovered/Resolved]
  - Osteoarthritis [Recovered/Resolved]
  - Gastrointestinal sounds abnormal [Unknown]
  - Tremor [Recovered/Resolved]
  - Wrong patient received product [Unknown]

NARRATIVE: CASE EVENT DATE: 2005
